FAERS Safety Report 7158857-X (Version None)
Quarter: 2010Q4

REPORT INFORMATION
  Report Type: 
  Country: None (occurrence: None)
  Receive Date: 20101214
  Receipt Date: 20100713
  Transmission Date: 20110411
  Serious: No
  Sender: FDA-Public Use
  Company Number: US-ASTRAZENECA-2010SE32605

PATIENT
  Age: 705 Month
  Sex: Female
  Weight: 71.7 kg

DRUGS (2)
  1. CRESTOR [Suspect]
     Indication: HYPERCHOLESTEROLAEMIA
     Route: 048
     Dates: start: 20090401
  2. CRESTOR [Suspect]
     Route: 048

REACTIONS (2)
  - MUSCLE SPASMS [None]
  - OVARIAN CYST [None]
